FAERS Safety Report 10141547 (Version 6)
Quarter: 2016Q3

REPORT INFORMATION
  Report Type: Spontaneous
  Country: US (occurrence: US)
  Receive Date: 20140429
  Receipt Date: 20160921
  Transmission Date: 20161108
  Serious: Yes (Death, Hospitalization, Other)
  Sender: FDA-Public Use
  Company Number: US-GLAXOSMITHKLINE-A1071256A

PATIENT
  Age: 64 Year
  Sex: Female

DRUGS (7)
  1. COUMADIN [Concomitant]
     Active Substance: WARFARIN SODIUM
  2. FLOLAN [Suspect]
     Active Substance: EPOPROSTENOL SODIUM
     Dosage: 26 DF (CONCENTRATION 45,000 NG/ML, PUMP RATE 82 ML/DAY, VIAL STRENGTH 1.5 MG), CO
     Route: 042
  3. REVATIO [Concomitant]
     Active Substance: SILDENAFIL CITRATE
  4. FLOLAN [Suspect]
     Active Substance: EPOPROSTENOL SODIUM
     Indication: PULMONARY ARTERIAL HYPERTENSION
     Dosage: 26 NG/KG/MIN CONTINUOUS, CONCENTRATION: 45,000 NG/ML, PUMP RATE: 82 ML/DAY, VIAL STRENGTH: 1.5 MG).
     Route: 042
     Dates: start: 20030513
  5. FLOLAN [Suspect]
     Active Substance: EPOPROSTENOL SODIUM
     Dosage: 26 NG/KG/MIN CONTINUOUS
     Route: 042
     Dates: start: 20070103
  6. FLOLAN [Suspect]
     Active Substance: EPOPROSTENOL SODIUM
     Dosage: UNK
     Dates: start: 20030513
  7. FLOLAN [Suspect]
     Active Substance: EPOPROSTENOL SODIUM
     Indication: PULMONARY ARTERIAL HYPERTENSION
     Dosage: UNK
     Dates: start: 20070103

REACTIONS (9)
  - Dyspnoea [Unknown]
  - Dialysis related complication [Fatal]
  - Catheter removal [Unknown]
  - Cardiac disorder [Fatal]
  - Hospitalisation [Unknown]
  - Device breakage [Unknown]
  - Central venous catheterisation [Unknown]
  - Renal disorder [Not Recovered/Not Resolved]
  - Renal failure [Unknown]

NARRATIVE: CASE EVENT DATE: 201404
